FAERS Safety Report 6184989-9 (Version None)
Quarter: 2009Q2

REPORT INFORMATION
  Report Type: 
  Country: None (occurrence: None)
  Receive Date: 20090511
  Receipt Date: 20090310
  Transmission Date: 20091009
  Serious: No
  Sender: FDA-Public Use
  Company Number: A0772526A

PATIENT
  Age: 73 Year
  Sex: Female

DRUGS (8)
  1. COREG CR [Suspect]
     Dosage: 20MG PER DAY
     Route: 048
     Dates: start: 20090305
  2. NORVASC [Concomitant]
  3. BENICAR [Concomitant]
  4. PHENERGAN [Concomitant]
  5. PLAVIX [Concomitant]
  6. ADVAIR HFA [Concomitant]
  7. SPIRIVA [Concomitant]
  8. VITAMIN D [Concomitant]

REACTIONS (1)
  - NAUSEA [None]
